FAERS Safety Report 19460326 (Version 1)
Quarter: 2021Q2

REPORT INFORMATION
  Report Type: Spontaneous
  Country: FR (occurrence: FR)
  Receive Date: 20210625
  Receipt Date: 20210625
  Transmission Date: 20210717
  Serious: Yes (Other)
  Sender: FDA-Public Use
  Company Number: FR-TEVA-2021-FR-1925039

PATIENT
  Age: 82 Year
  Sex: Female
  Weight: 48 kg

DRUGS (7)
  1. CHLORHYDRATE DE LERCANIDIPINE [Suspect]
     Active Substance: LERCANIDIPINE HYDROCHLORIDE
     Indication: HYPERTENSION
     Dosage: ROUTE OF ADMINISTRATION : ORAL .UNIT DOSE:10MILLIGRAM
     Route: 048
     Dates: end: 20190111
  2. KARDEGIC [Suspect]
     Active Substance: ASPIRIN DL-LYSINE
     Indication: THROMBOSIS PROPHYLAXIS
     Dosage: ROUTE OF ADMINISTRATION : ORAL .UNIT DOSE:160MILLIGRAM
     Route: 048
  3. ENALAPRIL (MALEATE D^) [Suspect]
     Active Substance: ENALAPRIL MALEATE
     Indication: HYPERTENSION
     Dosage: ROUTE OF ADMINISTRATION : ORAL .UNIT DOSE:20MILLIGRAM
     Route: 048
     Dates: end: 20190111
  4. PANTOPRAZOLE [Suspect]
     Active Substance: PANTOPRAZOLE
     Indication: PROPHYLAXIS AGAINST GASTROINTESTINAL ULCER
     Dosage: ROUTE OF ADMINISTRATION : ORAL .UNIT DOSE:20MILLIGRAM
     Route: 048
  5. LEVOTHYROXINE SODIQUE [Suspect]
     Active Substance: LEVOTHYROXINE SODIUM
     Indication: HYPOTHYROIDISM
     Dosage: ROUTE OF ADMINISTRATION : ORAL .UNIT DOSE:50MICROGRAM
     Route: 048
  6. CHLORHYDRATE DE FLUOXETINE [Suspect]
     Active Substance: FLUOXETINE HYDROCHLORIDE
     Indication: DEPRESSION
     Dosage: ROUTE OF ADMINISTRATION : ORAL .UNIT DOSE:20MILLIGRAM
     Route: 048
  7. MOVICOL [Suspect]
     Active Substance: POLYETHYLENE GLYCOL 3350\POTASSIUM CHLORIDE\SODIUM BICARBONATE\SODIUM CHLORIDE
     Indication: CONSTIPATION
     Dosage: 1DOSAGEFORM
     Route: 048

REACTIONS (1)
  - Hyperkalaemia [Recovering/Resolving]

NARRATIVE: CASE EVENT DATE: 20190110
